FAERS Safety Report 24773639 (Version 1)
Quarter: 2024Q4

REPORT INFORMATION
  Report Type: Spontaneous
  Country: FR (occurrence: FR)
  Receive Date: 20241225
  Receipt Date: 20241225
  Transmission Date: 20250115
  Serious: Yes (Hospitalization)
  Sender: ROCHE
  Company Number: None

PATIENT
  Age: 50 Year
  Sex: Male
  Weight: 79.4 kg

DRUGS (6)
  1. TECENTRIQ [Suspect]
     Active Substance: ATEZOLIZUMAB
     Indication: Hepatocellular carcinoma
     Dosage: C5
     Route: 042
     Dates: start: 20240805, end: 20241028
  2. BEVACIZUMAB [Concomitant]
     Active Substance: BEVACIZUMAB
  3. TENOFOVIR DISOPROXIL [Concomitant]
     Active Substance: TENOFOVIR DISOPROXIL
  4. GABAPENTIN [Concomitant]
     Active Substance: GABAPENTIN
  5. SKENAN [Concomitant]
     Active Substance: MORPHINE SULFATE
  6. POLYETHYLENE GLYCOL 4000 [Concomitant]
     Active Substance: POLYETHYLENE GLYCOL 4000

REACTIONS (1)
  - Myositis [Not Recovered/Not Resolved]

NARRATIVE: CASE EVENT DATE: 20240901
